FAERS Safety Report 17213315 (Version 1)
Quarter: 2019Q4

REPORT INFORMATION
  Report Type: Spontaneous
  Country: US (occurrence: US)
  Receive Date: 20191205
  Receipt Date: 20191205
  Transmission Date: 20200122
  Serious: Yes (Other)
  Sender: FDA-Public Use
  Company Number: None

PATIENT
  Age: 62 Year
  Sex: Female

DRUGS (2)
  1. EMGALITY [Suspect]
     Active Substance: GALCANEZUMAB-GNLM
     Route: 058
     Dates: start: 201907
  2. ELIQUIS [Concomitant]
     Active Substance: APIXABAN

REACTIONS (2)
  - Pulmonary embolism [None]
  - Chest pain [None]

NARRATIVE: CASE EVENT DATE: 20191117
